FAERS Safety Report 5065316-7 (Version None)
Quarter: 2006Q3

REPORT INFORMATION
  Report Type: 
  Country: None (occurrence: None)
  Receive Date: 20060731
  Receipt Date: 20060717
  Transmission Date: 20061208
  Serious: Yes (Hospitalization, Other)
  Sender: FDA-Public Use
  Company Number: GBWYE229518JUL06

PATIENT
  Age: 12 Year
  Sex: Female

DRUGS (5)
  1. ENBREL [Suspect]
     Indication: JUVENILE ARTHRITIS
     Route: 058
     Dates: start: 20050901
  2. ENBREL [Suspect]
     Dosage: UNKNOWN
     Route: 058
  3. IBUPROFEN [Concomitant]
     Dates: start: 20051101
  4. UNSPECIFIED MEDICATION [Concomitant]
     Dates: start: 20051101
  5. DICLOFENAC [Concomitant]
     Dates: start: 20050301

REACTIONS (2)
  - MOOD SWINGS [None]
  - OPTIC NEURITIS [None]
